FAERS Safety Report 8235409-1 (Version None)
Quarter: 2012Q1

REPORT INFORMATION
  Report Type: 
  Country: None (occurrence: None)
  Receive Date: 20120326
  Receipt Date: 20120315
  Transmission Date: 20120608
  Serious: Yes (Hospitalization)
  Sender: FDA-Public Use
  Company Number: NL-MEDIMMUNE-MEDI-0015223

PATIENT
  Sex: Female
  Weight: 7.26 kg

DRUGS (2)
  1. SYNAGIS [Suspect]
     Route: 030
     Dates: start: 20110901, end: 20120119
  2. SYNAGIS [Suspect]
     Indication: BRONCHOPULMONARY DYSPLASIA
     Route: 030
     Dates: start: 20120216, end: 20120315

REACTIONS (6)
  - PNEUMONIA [None]
  - DEHYDRATION [None]
  - COUGH [None]
  - VOMITING [None]
  - PYREXIA [None]
  - DIARRHOEA [None]
